FAERS Safety Report 16242125 (Version 1)
Quarter: 2019Q2

REPORT INFORMATION
  Report Type: Report from Study
  Country: CN (occurrence: CN)
  Receive Date: 20190426
  Receipt Date: 20190426
  Transmission Date: 20190711
  Serious: Yes (Other)
  Sender: FDA-Public Use
  Company Number: CN-ROCHE-2306205

PATIENT

DRUGS (5)
  1. CAPECITABINE. [Suspect]
     Active Substance: CAPECITABINE
     Indication: BREAST CANCER
     Dosage: CONTINUOUSLY FOR 2 WEEKS
     Route: 048
  2. GEMCITABINE [Suspect]
     Active Substance: GEMCITABINE\GEMCITABINE HYDROCHLORIDE
     Indication: DRUG RESISTANCE
  3. NORMAL SALINE [Concomitant]
     Active Substance: SODIUM CHLORIDE
     Route: 065
  4. GEMCITABINE [Suspect]
     Active Substance: GEMCITABINE\GEMCITABINE HYDROCHLORIDE
     Indication: BREAST CANCER
     Dosage: IVGTT IN 30 MINUTES, D1 AND D8
     Route: 041
  5. CAPECITABINE. [Suspect]
     Active Substance: CAPECITABINE
     Indication: DRUG RESISTANCE

REACTIONS (7)
  - Liver injury [Unknown]
  - Nausea [Unknown]
  - Palmar-plantar erythrodysaesthesia syndrome [Unknown]
  - Blood albumin decreased [Unknown]
  - Diarrhoea [Unknown]
  - Platelet count decreased [Unknown]
  - Vomiting [Unknown]
